FAERS Safety Report 7535828-2 (Version None)
Quarter: 2011Q2

REPORT INFORMATION
  Report Type: 
  Country: None (occurrence: None)
  Receive Date: 20110607
  Receipt Date: 20110607
  Transmission Date: 20111010
  Serious: Yes (Life-Threatening, Hospitalization)
  Sender: FDA-Public Use
  Company Number: None

PATIENT
  Age: 48 Year
  Sex: Female
  Weight: 68.0396 kg

DRUGS (2)
  1. DEXILANT [Suspect]
     Indication: EROSIVE OESOPHAGITIS
     Dosage: 1 DAILY BUCCAL
     Route: 002
     Dates: start: 20110108, end: 20110112
  2. OMEPRAZOLE [Suspect]
     Dosage: 1 DAILY BUCCAL
     Route: 002
     Dates: start: 20110523, end: 20110604

REACTIONS (12)
  - DYSPNOEA [None]
  - SYNCOPE [None]
  - MALAISE [None]
  - PARAESTHESIA [None]
  - HEART RATE INCREASED [None]
  - HEAD INJURY [None]
  - LOCAL SWELLING [None]
  - SELF-INDUCED VOMITING [None]
  - VOMITING [None]
  - CHILLS [None]
  - HEADACHE [None]
  - DIZZINESS [None]
